FAERS Safety Report 13695841 (Version 1)
Quarter: 2017Q2

REPORT INFORMATION
  Report Type: Report from Study
  Country: CA (occurrence: CA)
  Receive Date: 20170627
  Receipt Date: 20170627
  Transmission Date: 20170830
  Serious: Yes (Hospitalization, Other)
  Sender: FDA-Public Use
  Company Number: CA-AMGEN-CANSL2017094438

PATIENT
  Age: 72 Year
  Sex: Male

DRUGS (3)
  1. LEVOTHYROXINE. [Concomitant]
     Active Substance: LEVOTHYROXINE
  2. PROLIA [Suspect]
     Active Substance: DENOSUMAB
     Indication: OSTEOPOROSIS
     Dosage: UNK
     Route: 065
     Dates: start: 20150326
  3. TEVA PANTOPRAZOLE [Concomitant]
     Dosage: UNK UNK, QD

REACTIONS (2)
  - Duodenal ulcer haemorrhage [Unknown]
  - Blood urine present [Unknown]
